FAERS Safety Report 4433848-8 (Version None)
Quarter: 2004Q3

REPORT INFORMATION
  Report Type: 
  Country: None (occurrence: None)
  Receive Date: 20040825
  Receipt Date: 20040805
  Transmission Date: 20050211
  Serious: Yes (Other)
  Sender: FDA-Public Use
  Company Number: USA040874784

PATIENT
  Age: 20 Year
  Sex: Female

DRUGS (5)
  1. FORTEO [Suspect]
     Indication: OSTEOPOROSIS
     Dosage: 20 UG DAY
     Dates: start: 20040501
  2. CALTRATE (CALCIUM CARBONATE) [Concomitant]
  3. MULTI-VITAMIN [Concomitant]
  4. ASPIRIN (ACETYSALICYLIC ACID) [Concomitant]
  5. COLACE (DOCUSATE SODIUM) [Concomitant]

REACTIONS (5)
  - AGITATION [None]
  - ANOREXIA [None]
  - BLOOD CALCIUM INCREASED [None]
  - OSTEOCALCIN INCREASED [None]
  - WEIGHT DECREASED [None]
